FAERS Safety Report 24095372 (Version 2)
Quarter: 2024Q3

REPORT INFORMATION
  Report Type: Spontaneous
  Country: IT (occurrence: IT)
  Receive Date: 20240716
  Receipt Date: 20240724
  Transmission Date: 20241016
  Serious: Yes (Hospitalization)
  Sender: AUROBINDO
  Company Number: IT-MLMSERVICE-20240628-PI115598-00174-1

PATIENT
  Age: 11 Year
  Sex: Male

DRUGS (14)
  1. LORAZEPAM [Suspect]
     Active Substance: LORAZEPAM
     Indication: Psychotic disorder
     Dosage: 2.5 MILLIGRAM, 3 TIMES A DAY (2.5 MG 3 TIMES /DAY)
     Route: 065
     Dates: start: 20230304, end: 20230305
  2. OLANZAPINE [Suspect]
     Active Substance: OLANZAPINE
     Indication: Psychotic disorder
     Dosage: 10 MILLIGRAM, ONCE A DAY (10 MG QD)
     Route: 065
  3. OLANZAPINE [Suspect]
     Active Substance: OLANZAPINE
     Indication: Attention deficit hyperactivity disorder
     Dosage: 5 MILLIGRAM, ONCE A DAY (UNTIL 5MG/DAY)
     Route: 065
     Dates: start: 20230302, end: 20230303
  4. OLANZAPINE [Suspect]
     Active Substance: OLANZAPINE
     Indication: Autism spectrum disorder
     Dosage: 10 MILLIGRAM, ONCE A DAY (UNTIL 10 MG/DAY)
     Route: 065
     Dates: start: 20230304
  5. RISPERDAL [Suspect]
     Active Substance: RISPERIDONE
     Indication: Psychotic disorder
     Dosage: UNK UNK, ONCE A DAY
     Route: 065
  6. RISPERDAL [Suspect]
     Active Substance: RISPERIDONE
     Indication: Attention deficit hyperactivity disorder
     Dosage: 2 MILLIGRAM, ONCE A DAY (UNTIL 2MG/DAY)
     Route: 065
     Dates: start: 202012, end: 202104
  7. RISPERDAL [Suspect]
     Active Substance: RISPERIDONE
     Indication: Autism spectrum disorder
     Dosage: 3 MILLIGRAM, ONCE A DAY (UNTIL 3 MG/DAY)
     Route: 065
     Dates: start: 20230302, end: 20230303
  8. RISPERDAL [Suspect]
     Active Substance: RISPERIDONE
     Dosage: 6 MILLIGRAM, ONCE A DAY (UNTIL 6 MG/DAY)
     Route: 065
     Dates: start: 20230304, end: 20230305
  9. RISPERDAL [Suspect]
     Active Substance: RISPERIDONE
     Dosage: 5 MILLIGRAM, ONCE A DAY (UNTIL 5 MG/DAY)
     Route: 065
     Dates: start: 20230308, end: 20230309
  10. RISPERDAL [Suspect]
     Active Substance: RISPERIDONE
     Dosage: 4 MILLIGRAM, ONCE A DAY
     Route: 065
     Dates: start: 20230310, end: 20230311
  11. RISPERDAL [Suspect]
     Active Substance: RISPERIDONE
     Dosage: 3.5 MILLIGRAM, ONCE A DAY
     Route: 065
     Dates: start: 20230312
  12. CHLORPROMAZINE [Suspect]
     Active Substance: CHLORPROMAZINE
     Indication: Psychotic disorder
     Dosage: UNK
     Route: 065
     Dates: start: 20230302
  13. HALOPERIDOL [Suspect]
     Active Substance: HALOPERIDOL
     Indication: Psychotic disorder
     Dosage: UNK
     Route: 065
     Dates: start: 20230302, end: 20230303
  14. HALOPERIDOL [Suspect]
     Active Substance: HALOPERIDOL
     Indication: Psychotic disorder
     Dosage: UNK
     Route: 065
     Dates: start: 20230302, end: 20230303

REACTIONS (5)
  - Extrapyramidal disorder [Unknown]
  - Drug ineffective [Unknown]
  - Salivary hypersecretion [Unknown]
  - Muscle rigidity [Unknown]
  - Sedation [Unknown]

NARRATIVE: CASE EVENT DATE: 20230301
